FAERS Safety Report 10282830 (Version 2)
Quarter: 2014Q3

REPORT INFORMATION
  Report Type: Not Available
  Country: DE (occurrence: DE)
  Receive Date: 20140708
  Receipt Date: 20140721
  Transmission Date: 20150326
  Serious: Yes (Other)
  Sender: FDA-Public Use
  Company Number: DE-BEH-2014043575

PATIENT
  Age: 56 Year
  Sex: Female

DRUGS (2)
  1. PRIVIGEN [Suspect]
     Active Substance: HUMAN IMMUNOGLOBULIN G
     Dosage: ONE DOSAGE FORM
     Route: 042
  2. OCTAGAM IMMUNE GLOBULIN (HUMAN) [Suspect]
     Active Substance: HUMAN IMMUNOGLOBULIN G
     Dosage: ONE DOSAGE FORM
     Route: 042

REACTIONS (5)
  - Dermatitis allergic [Unknown]
  - Headache [Unknown]
  - Skin exfoliation [Unknown]
  - Labile blood pressure [Unknown]
  - Ecchymosis [Unknown]
